FAERS Safety Report 10190826 (Version 1)
Quarter: 2014Q2

REPORT INFORMATION
  Report Type: Spontaneous
  Country: GB (occurrence: GB)
  Receive Date: 20140523
  Receipt Date: 20140523
  Transmission Date: 20141212
  Serious: Yes (Other)
  Sender: FDA-Public Use
  Company Number: GB-BRISTOL-MYERS SQUIBB COMPANY-20803490

PATIENT
  Sex: 0

DRUGS (2)
  1. ELIQUIS [Suspect]
     Indication: THROMBOSIS PROPHYLAXIS
  2. METFORMIN HCL [Suspect]

REACTIONS (2)
  - Renal failure [Unknown]
  - Blood pressure decreased [Unknown]
